FAERS Safety Report 11325732 (Version 5)
Quarter: 2015Q3

REPORT INFORMATION
  Report Type: Report from Study
  Country: US (occurrence: US)
  Receive Date: 20150731
  Receipt Date: 20150827
  Transmission Date: 20151125
  Serious: Yes (Death, Hospitalization, Other)
  Sender: FDA-Public Use
  Company Number: US-AMGEN-USASL2015068335

PATIENT
  Age: 27 Year
  Sex: Male

DRUGS (2)
  1. PREDNISONE. [Concomitant]
     Active Substance: PREDNISONE
     Dosage: UNK
  2. BLINCYTO [Suspect]
     Active Substance: BLINATUMOMAB
     Indication: ACUTE LYMPHOCYTIC LEUKAEMIA
     Dosage: UNK
     Route: 065
     Dates: start: 201502, end: 20150725

REACTIONS (8)
  - Malignant neoplasm progression [Unknown]
  - Acute lymphocytic leukaemia recurrent [Unknown]
  - Medical device complication [Unknown]
  - Traumatic intracranial haemorrhage [Fatal]
  - Device related infection [Unknown]
  - Drug effect decreased [Unknown]
  - Blood stem cell transplant failure [Unknown]
  - Asthenia [Unknown]
